FAERS Safety Report 20300103 (Version 1)
Quarter: 2022Q1

REPORT INFORMATION
  Report Type: Spontaneous
  Country: US (occurrence: None)
  Receive Date: 20220105
  Receipt Date: 20220105
  Transmission Date: 20220423
  Serious: Yes (Other)
  Sender: FDA-Public Use
  Company Number: None

PATIENT
  Sex: Female

DRUGS (5)
  1. XOLAIR [Suspect]
     Active Substance: OMALIZUMAB
     Indication: Idiopathic urticaria
     Route: 058
     Dates: start: 20200227
  2. LIDOCAINE [Concomitant]
     Active Substance: LIDOCAINE
  3. METHYLPHENIDATE [Concomitant]
     Active Substance: METHYLPHENIDATE
  4. NAPROXEN [Concomitant]
     Active Substance: NAPROXEN
  5. XANAX XR [Concomitant]
     Active Substance: ALPRAZOLAM

REACTIONS (1)
  - Cerebral haemorrhage [None]
